FAERS Safety Report 19844287 (Version 8)
Quarter: 2021Q4

REPORT INFORMATION
  Report Type: Spontaneous
  Country: US (occurrence: US)
  Receive Date: 20210917
  Receipt Date: 20211210
  Transmission Date: 20220303
  Serious: No
  Sender: FDA-Public Use
  Company Number: US-UNITED THERAPEUTICS-UNT-2021-018024

PATIENT
  Sex: Female
  Weight: 67.574 kg

DRUGS (6)
  1. REMODULIN [Suspect]
     Active Substance: TREPROSTINIL
     Indication: Pulmonary arterial hypertension
     Dosage: UNK, CONTINUING
     Route: 041
     Dates: start: 20210820
  2. REMODULIN [Suspect]
     Active Substance: TREPROSTINIL
     Dosage: 0.0245 ?G/KG, CONTINUING
     Route: 041
     Dates: start: 2021
  3. REMODULIN [Suspect]
     Active Substance: TREPROSTINIL
     Dosage: UNK, CONTINUING
     Route: 041
     Dates: start: 2021
  4. REMODULIN [Suspect]
     Active Substance: TREPROSTINIL
     Dosage: 0.035 ?G/KG, CONTINUING
     Route: 041
     Dates: start: 2021
  5. CHLORHEXIDINE [Suspect]
     Active Substance: CHLORHEXIDINE
     Indication: Product used for unknown indication
     Dosage: UNK
     Route: 065
  6. LETAIRIS [Concomitant]
     Active Substance: AMBRISENTAN
     Indication: Product used for unknown indication
     Dosage: UNK
     Route: 065

REACTIONS (7)
  - Dermatitis contact [Unknown]
  - Catheter site rash [Recovering/Resolving]
  - Catheter site discharge [Unknown]
  - Catheter site pruritus [Unknown]
  - Dyspnoea exertional [Not Recovered/Not Resolved]
  - Skin irritation [Unknown]
  - Catheter site infection [Unknown]

NARRATIVE: CASE EVENT DATE: 20210101
